FAERS Safety Report 9095611 (Version 2)
Quarter: 2013Q4

REPORT INFORMATION
  Report Type: Spontaneous
  Country: FR (occurrence: FR)
  Receive Date: 20130220
  Receipt Date: 20131212
  Transmission Date: 20140711
  Serious: Yes (Other)
  Sender: FDA-Public Use
  Company Number: FR-AMGEN-FRASP2013011256

PATIENT
  Age: 53 Year
  Sex: Female

DRUGS (2)
  1. ENBREL [Suspect]
     Indication: PSORIASIS
     Dosage: 30 MG, 2X/WEEK
     Route: 058
     Dates: start: 20111109, end: 201201
  2. ENBREL [Suspect]
     Dosage: 50 MG, WEEKLY
     Route: 058
     Dates: start: 20120126, end: 20130109

REACTIONS (4)
  - Musculoskeletal disorder [Unknown]
  - Multiple sclerosis [Unknown]
  - Demyelination [Recovered/Resolved with Sequelae]
  - Paraesthesia [Recovered/Resolved]
